FAERS Safety Report 6593671-5 (Version None)
Quarter: 2010Q1

REPORT INFORMATION
  Report Type: 
  Country: None (occurrence: None)
  Receive Date: 20100222
  Receipt Date: 20091218
  Transmission Date: 20100710
  Serious: No
  Sender: FDA-Public Use
  Company Number: US-BRISTOL-MYERS SQUIBB COMPANY-14831184

PATIENT
  Sex: Female

DRUGS (2)
  1. ABILIFY [Suspect]
  2. ORENCIA [Suspect]

REACTIONS (3)
  - CONSTIPATION [None]
  - FATIGUE [None]
  - YAWNING [None]
